FAERS Safety Report 8861954 (Version 4)
Quarter: 2013Q4

REPORT INFORMATION
  Report Type: Spontaneous
  Country: GB (occurrence: GB)
  Receive Date: 20121025
  Receipt Date: 20131010
  Transmission Date: 20140711
  Serious: Yes (Other)
  Sender: FDA-Public Use
  Company Number: GB-009507513-1210GBR010721

PATIENT
  Age: 16 Year
  Sex: Female

DRUGS (3)
  1. NEXPLANON [Suspect]
     Indication: CONTRACEPTION
     Dosage: 68 MG, UNK
     Route: 059
     Dates: start: 20120201, end: 20121003
  2. LIDOCAINE [Concomitant]
     Dosage: 2 ML, UNK
     Route: 058
     Dates: start: 20120201
  3. GEDAREL [Concomitant]
     Dosage: UNK
     Dates: start: 20120321

REACTIONS (2)
  - Vaginal haemorrhage [Unknown]
  - Device breakage [Unknown]
